FAERS Safety Report 17044652 (Version 1)
Quarter: 2019Q4

REPORT INFORMATION
  Report Type: Spontaneous
  Country: US (occurrence: US)
  Receive Date: 20191018
  Receipt Date: 20191018
  Transmission Date: 20200122
  Serious: No
  Sender: FDA-Public Use
  Company Number: None

PATIENT
  Age: 82 Year
  Sex: Male

DRUGS (1)
  1. VYNDAQEL [Suspect]
     Active Substance: TAFAMIDIS MEGLUMINE
     Indication: CARDIAC AMYLOIDOSIS
     Route: 048
     Dates: start: 20190928

REACTIONS (4)
  - Dyspnoea [None]
  - Abdominal distension [None]
  - Weight increased [None]
  - Fatigue [None]

NARRATIVE: CASE EVENT DATE: 20191002
